FAERS Safety Report 8438814-3 (Version None)
Quarter: 2012Q2

REPORT INFORMATION
  Report Type: 
  Country: None (occurrence: None)
  Receive Date: 20120608
  Receipt Date: 20120529
  Transmission Date: 20120825
  Serious: Yes (Hospitalization, Disabling, Other)
  Sender: FDA-Public Use
  Company Number: 2012SP029135

PATIENT
  Sex: Male

DRUGS (3)
  1. RIBAVIRIN [Suspect]
     Indication: HEPATITIS C
     Dates: start: 20110722
  2. PEG-INTRON [Suspect]
     Indication: HEPATITIS C
     Dates: start: 20110722
  3. VICTRELIS [Suspect]
     Indication: HEPATITIS C
     Dates: start: 20110820

REACTIONS (3)
  - LOSS OF CONSCIOUSNESS [None]
  - TINNITUS [None]
  - FAECAL INCONTINENCE [None]
